FAERS Safety Report 7312868-X (Version None)
Quarter: 2011Q1

REPORT INFORMATION
  Report Type: 
  Country: None (occurrence: None)
  Receive Date: 20110224
  Receipt Date: 20110221
  Transmission Date: 20110831
  Serious: Yes (Hospitalization)
  Sender: FDA-Public Use
  Company Number: US-RB-022724-11

PATIENT
  Sex: Female

DRUGS (2)
  1. SUBUTEX [Suspect]
     Indication: DRUG DEPENDENCE
     Route: 064
  2. SUBUTEX [Suspect]
     Route: 064
     Dates: end: 20110203

REACTIONS (3)
  - HOSPITALISATION [None]
  - DRUG EXPOSURE DURING PREGNANCY [None]
  - MATERNAL DRUGS AFFECTING FOETUS [None]
